FAERS Safety Report 21794105 (Version 3)
Quarter: 2023Q1

REPORT INFORMATION
  Report Type: Report from Study
  Country: US (occurrence: US)
  Receive Date: 20221229
  Receipt Date: 20230309
  Transmission Date: 20230417
  Serious: No
  Sender: FDA-Public Use
  Company Number: US-ABBVIE-4218436

PATIENT
  Sex: Female

DRUGS (2)
  1. HUMIRA [Suspect]
     Active Substance: ADALIMUMAB
     Indication: Colitis ulcerative
     Route: 058
     Dates: start: 20200325
  2. HUMIRA [Suspect]
     Active Substance: ADALIMUMAB
     Indication: Crohn^s disease
     Route: 058

REACTIONS (9)
  - Ear infection [Not Recovered/Not Resolved]
  - Arthritis [Not Recovered/Not Resolved]
  - Influenza [Unknown]
  - Pain in extremity [Unknown]
  - Joint swelling [Unknown]
  - Inflammation [Recovering/Resolving]
  - Joint lock [Unknown]
  - Tonsillar hypertrophy [Not Recovered/Not Resolved]
  - Peripheral swelling [Unknown]
